FAERS Safety Report 9432425 (Version 1)
Quarter: 2013Q3

REPORT INFORMATION
  Report Type: Spontaneous
  Country: US (occurrence: None)
  Receive Date: 20130730
  Receipt Date: 20130730
  Transmission Date: 20140515
  Serious: Yes (Disabling)
  Sender: FDA-Public Use
  Company Number: None

PATIENT
  Age: 88 Year
  Sex: Female
  Weight: 45.36 kg

DRUGS (14)
  1. HYDRALAZINE [Suspect]
     Indication: HYPERTENSION
     Dosage: UNKNOWN?1 INJECTION?NA?INJECTION
     Dates: start: 20120906
  2. POTASSIUM [Concomitant]
  3. MAGNESIUM [Concomitant]
  4. OIL D-3 [Concomitant]
  5. VITAMIN C [Concomitant]
  6. GINKGO BILOBA [Concomitant]
  7. PECTIN PURE [Concomitant]
  8. CINNAMON [Concomitant]
  9. ZINC [Concomitant]
  10. ASTAXANTHIN [Concomitant]
  11. BILBERRY [Concomitant]
  12. B-COMPLEX [Concomitant]
  13. VISION CLEAR [Concomitant]
  14. OMEGA 3. [Concomitant]

REACTIONS (19)
  - Malaise [None]
  - Dysstasia [None]
  - Blood pressure fluctuation [None]
  - Decreased appetite [None]
  - Weight decreased [None]
  - Visual impairment [None]
  - Hair disorder [None]
  - Sinus disorder [None]
  - Stomatitis [None]
  - Eye pain [None]
  - Eye irritation [None]
  - Insomnia [None]
  - Gait disturbance [None]
  - Balance disorder [None]
  - Arthralgia [None]
  - Diarrhoea [None]
  - Faecal incontinence [None]
  - Pain [None]
  - Systemic lupus erythematosus [None]
